FAERS Safety Report 6380713-5 (Version None)
Quarter: 2009Q3

REPORT INFORMATION
  Report Type: 
  Country: None (occurrence: None)
  Receive Date: 20090929
  Receipt Date: 20090921
  Transmission Date: 20100115
  Serious: Yes (Hospitalization, Other)
  Sender: FDA-Public Use
  Company Number: US-ROCHE-657890

PATIENT
  Age: 66 Year
  Sex: Male
  Weight: 72.1 kg

DRUGS (2)
  1. CAPECITABINE [Suspect]
     Dosage: FREQ: DAY 1 THROUGH DAY 7 EACH CYCLE. (CYCLE 3)
     Route: 048
     Dates: start: 20090910, end: 20090915
  2. GEMCITABINE [Suspect]
     Dosage: CYCLE 3, FREQ: DAY 1 EACH CYCLE
     Route: 042
     Dates: start: 20090910

REACTIONS (12)
  - AGITATION [None]
  - CONFUSIONAL STATE [None]
  - DIARRHOEA [None]
  - FEBRILE NEUTROPENIA [None]
  - HICCUPS [None]
  - HYPERBILIRUBINAEMIA [None]
  - HYPOALBUMINAEMIA [None]
  - HYPOKALAEMIA [None]
  - HYPONATRAEMIA [None]
  - INCONTINENCE [None]
  - NEUTROPENIA [None]
  - WHITE BLOOD CELL COUNT [None]
